FAERS Safety Report 16347318 (Version 1)
Quarter: 2019Q2

REPORT INFORMATION
  Report Type: Spontaneous
  Country: FR (occurrence: FR)
  Receive Date: 20190523
  Receipt Date: 20190523
  Transmission Date: 20190711
  Serious: Yes (Death, Other)
  Sender: FDA-Public Use
  Company Number: FR-BIOVITRUM-2019FR1146

PATIENT
  Age: 79 Year
  Sex: Male

DRUGS (2)
  1. KINERET [Suspect]
     Active Substance: ANAKINRA
     Indication: CHRONIC MYELOMONOCYTIC LEUKAEMIA
  2. KINERET [Suspect]
     Active Substance: ANAKINRA
     Indication: STILL^S DISEASE

REACTIONS (8)
  - Altered state of consciousness [Unknown]
  - Cerebral toxoplasmosis [Unknown]
  - Off label use [Unknown]
  - Symptom recurrence [Unknown]
  - Pneumocystis jirovecii pneumonia [Unknown]
  - Respiratory distress [Unknown]
  - Death [Fatal]
  - Pyrexia [Unknown]
